FAERS Safety Report 5012847-1 (Version None)
Quarter: 2006Q2

REPORT INFORMATION
  Report Type: 
  Country: None (occurrence: None)
  Receive Date: 20060530
  Receipt Date: 20060424
  Transmission Date: 20061013
  Serious: Yes (Death)
  Sender: FDA-Public Use
  Company Number: US-BRISTOL-MYERS SQUIBB COMPANY-13354592

PATIENT
  Age: 69 Year
  Sex: Male
  Weight: 122 kg

DRUGS (4)
  1. ERBITUX [Suspect]
     Indication: COLORECTAL CANCER METASTATIC
     Route: 042
     Dates: start: 20060101, end: 20060101
  2. TYLENOL (GELTAB) [Concomitant]
     Indication: PREMEDICATION
     Route: 048
     Dates: start: 20060101, end: 20060101
  3. DECADRON SRC [Concomitant]
     Indication: PREMEDICATION
     Route: 042
     Dates: start: 20060101, end: 20060101
  4. BENADRYL [Concomitant]
     Indication: PREMEDICATION
     Route: 042
     Dates: start: 20060101, end: 20060101

REACTIONS (1)
  - INFUSION RELATED REACTION [None]
